FAERS Safety Report 21927830 (Version 1)
Quarter: 2023Q1

REPORT INFORMATION
  Report Type: Spontaneous
  Country: US (occurrence: US)
  Receive Date: 20230130
  Receipt Date: 20230130
  Transmission Date: 20230418
  Serious: Yes (Other)
  Sender: FDA-Public Use
  Company Number: US-009507513-2301USA002526

PATIENT
  Age: 72 Year
  Weight: 65.76 kg

DRUGS (1)
  1. KEYTRUDA [Suspect]
     Active Substance: PEMBROLIZUMAB
     Indication: Endometrial cancer
     Dosage: UNK, EVERY 6 WEEKS
     Dates: start: 20200623

REACTIONS (2)
  - Colitis microscopic [Recovered/Resolved]
  - Food intolerance [Unknown]

NARRATIVE: CASE EVENT DATE: 20200101
